FAERS Safety Report 5392042-7 (Version None)
Quarter: 2007Q3

REPORT INFORMATION
  Report Type: 
  Country: None (occurrence: None)
  Receive Date: 20070720
  Receipt Date: 20070710
  Transmission Date: 20080115
  Serious: Yes (Other)
  Sender: FDA-Public Use
  Company Number: GB-JNJFOC-20070702235

PATIENT
  Sex: Female
  Weight: 52 kg

DRUGS (6)
  1. REMICADE [Suspect]
     Indication: RHEUMATOID ARTHRITIS
     Route: 042
  2. PREDNISOLONE [Concomitant]
  3. DIDRONEL [Concomitant]
  4. LANSOPRAZOLE [Concomitant]
  5. REMEDEINE [Concomitant]
  6. SALAZOPYRIN [Concomitant]

REACTIONS (1)
  - SQUAMOUS CELL CARCINOMA [None]
